FAERS Safety Report 9786495 (Version 1)
Quarter: 2013Q4

REPORT INFORMATION
  Report Type: Spontaneous
  Country: GB (occurrence: None)
  Receive Date: 20131224
  Receipt Date: 20131224
  Transmission Date: 20140711
  Serious: Yes (Hospitalization, Other)
  Sender: FDA-Public Use
  Company Number: AUR-APL-2013-10477

PATIENT
  Age: 89 Year
  Sex: Female

DRUGS (9)
  1. NAPROXEN [Suspect]
     Indication: BACK PAIN
     Route: 048
     Dates: start: 20130226, end: 20130305
  2. ADIPINE MR (NIFEDIPINE) [Concomitant]
  3. BENDROFLUMETHIAZIDE (BENDROFLUMETHIAZIDE) [Concomitant]
  4. FERROUS FUMARATE (FERROUS FUMARATE) [Concomitant]
  5. FORCEVAL (AMINO ACIDS NOS W/ELECTROLYTES NOS/FERROUS FU) [Concomitant]
  6. LANSOPRAZOLE (LANSOPRAZOLE) [Concomitant]
  7. PARACETAMOL (PARACETAMOL) [Concomitant]
  8. THIAMINE (THIAMINE) [Concomitant]
  9. VITAMIN B COMPLEX STRONG (VITAMIN B COMPLEX) [Concomitant]

REACTIONS (5)
  - Renal failure acute [None]
  - Haematemesis [None]
  - Cholelithiasis [None]
  - Renal cyst [None]
  - Gastrointestinal haemorrhage [None]
